FAERS Safety Report 19269466 (Version 1)
Quarter: 2021Q2

REPORT INFORMATION
  Report Type: Spontaneous
  Country: US (occurrence: US)
  Receive Date: 20210518
  Receipt Date: 20210518
  Transmission Date: 20210717
  Serious: Yes (Other)
  Sender: FDA-Public Use
  Company Number: US-JNJFOC-20210519056

PATIENT
  Sex: Female

DRUGS (3)
  1. POLYSPORIN FIRST AID ANTIBIOTIC [Suspect]
     Active Substance: BACITRACIN\POLYMYXIN B SULFATE
     Indication: PRODUCT USED FOR UNKNOWN INDICATION
     Route: 065
  2. SIMPLY NEOSPORIN FIRST AID ANTIBIOTIC [Suspect]
     Active Substance: BACITRACIN ZINC\POLYMYXIN B SULFATE
     Indication: PRODUCT USED FOR UNKNOWN INDICATION
     Route: 065
  3. VISINE RED EYE TOTAL COMFORT MULTI?SYMPTOM [Suspect]
     Active Substance: POLYETHYLENE GLYCOL 400\TETRAHYDROZOLINE HYDROCHLORIDE\ZINC SULFATE
     Indication: PRODUCT USED FOR UNKNOWN INDICATION
     Route: 065

REACTIONS (1)
  - Third degree chemical burn of skin [Unknown]
